FAERS Safety Report 6474001-6 (Version None)
Quarter: 2009Q4

REPORT INFORMATION
  Report Type: 
  Country: None (occurrence: None)
  Receive Date: 20091204
  Receipt Date: 20091125
  Transmission Date: 20100525
  Serious: Yes (Hospitalization)
  Sender: FDA-Public Use
  Company Number: AU-ASTRAZENECA-2009SE28541

PATIENT
  Age: 64 Year
  Sex: Female

DRUGS (12)
  1. CRESTOR [Suspect]
     Route: 048
  2. PLAVIX [Suspect]
     Indication: CORONARY ARTERY BYPASS
     Route: 048
     Dates: start: 20020207
  3. ARGININE [Concomitant]
  4. ARIMIDEX [Concomitant]
  5. BRICANYL [Concomitant]
  6. METFORMIN HCL [Concomitant]
  7. GOPTEN [Concomitant]
  8. IMDUR [Concomitant]
  9. MICARDIS [Concomitant]
  10. NEXIUM [Concomitant]
  11. NOVOMIX [Concomitant]
  12. VERACAPS SR [Concomitant]

REACTIONS (1)
  - BREAST CANCER [None]
